FAERS Safety Report 9390452 (Version 4)
Quarter: 2013Q3

REPORT INFORMATION
  Report Type: Spontaneous
  Country: US (occurrence: None)
  Receive Date: 20130620
  Receipt Date: 20130731
  Transmission Date: 20140515
  Serious: Yes (Hospitalization, Disabling, Other)
  Sender: FDA-Public Use
  Company Number: 2013PROUSA02881

PATIENT
  Age: 87 Year
  Sex: Male
  Weight: 65.3 kg

DRUGS (5)
  1. PROVENGE [Suspect]
     Indication: PROSTATE CANCER METASTATIC
     Route: 042
     Dates: start: 20130517, end: 20130517
  2. ATENOLO (ALTENOLO) [Concomitant]
  3. CASODEX [Concomitant]
  4. LUPRON (LEUPRORELIN ACETATE) [Concomitant]
  5. FOLIC ACID (FOLIC ACID) [Concomitant]

REACTIONS (4)
  - Staphylococcal infection [None]
  - Bedridden [None]
  - Gastrointestinal haemorrhage [None]
  - Device related infection [None]
